FAERS Safety Report 23499742 (Version 1)
Quarter: 2024Q1

REPORT INFORMATION
  Report Type: Other
  Country: US (occurrence: None)
  Receive Date: 20240208
  Receipt Date: 20240208
  Transmission Date: 20240410
  Serious: Yes (Hospitalization, Other)
  Sender: FDA-Public Use
  Company Number: US-ROCHE-3502756

PATIENT
  Age: 63 Year
  Sex: Male

DRUGS (7)
  1. OCREVUS [Suspect]
     Active Substance: OCRELIZUMAB
     Indication: Primary progressive multiple sclerosis
     Dosage: LAST DATE OF TREATMENT WITH OCREVUS WAS 22/AUG/2023.
     Route: 065
     Dates: start: 20210818, end: 20230822
  2. AMPYRA [Concomitant]
     Active Substance: DALFAMPRIDINE
  3. CICLOPIROX [Concomitant]
     Active Substance: CICLOPIROX\TOCOPHEROL
  4. GLATOPA [Concomitant]
     Active Substance: GLATIRAMER ACETATE
  5. MYRBETRIQ [Concomitant]
     Active Substance: MIRABEGRON
  6. TAMSULOSIN [Concomitant]
     Active Substance: TAMSULOSIN
  7. VITAMIN D3 [Concomitant]
     Active Substance: CHOLECALCIFEROL

REACTIONS (5)
  - Influenza [Recovered/Resolved]
  - Muscular weakness [Unknown]
  - Vitamin D deficiency [Unknown]
  - Insomnia [Unknown]
  - Squamous cell carcinoma [Unknown]

NARRATIVE: CASE EVENT DATE: 20231101
